FAERS Safety Report 14105264 (Version 2)
Quarter: 2018Q2

REPORT INFORMATION
  Report Type: Spontaneous
  Country: FR (occurrence: FR)
  Receive Date: 20171018
  Receipt Date: 20180606
  Transmission Date: 20180711
  Serious: Yes (Hospitalization)
  Sender: FDA-Public Use
  Company Number: FR-MERCK KGAA-2030624

PATIENT
  Age: 49 Year
  Sex: Female
  Weight: 60 kg

DRUGS (2)
  1. NOVOTHYROX [Suspect]
     Active Substance: LEVOTHYROXINE SODIUM
     Route: 048
     Dates: start: 20170829
  2. NOVOTHYROX [Suspect]
     Active Substance: LEVOTHYROXINE SODIUM
     Indication: HYPOTHYROIDISM
     Route: 048
     Dates: start: 20170803

REACTIONS (8)
  - Fatigue [Recovered/Resolved]
  - Blood thyroid stimulating hormone [Not Recovered/Not Resolved]
  - Vertigo [Recovered/Resolved]
  - Amnesia [Recovered/Resolved]
  - Vision blurred [Not Recovered/Not Resolved]
  - Disturbance in attention [Recovered/Resolved]
  - Headache [Recovered/Resolved]
  - Arthralgia [Not Recovered/Not Resolved]

NARRATIVE: CASE EVENT DATE: 2017
